FAERS Safety Report 6940339-9 (Version None)
Quarter: 2010Q3

REPORT INFORMATION
  Report Type: 
  Country: None (occurrence: None)
  Receive Date: 20100825
  Receipt Date: 20100819
  Transmission Date: 20110219
  Serious: Yes (Death, Hospitalization)
  Sender: FDA-Public Use
  Company Number: JP-BRISTOL-MYERS SQUIBB COMPANY-15248354

PATIENT
  Age: 44 Year
  Sex: Female

DRUGS (4)
  1. PARAPLATIN [Suspect]
     Indication: SARCOMA
     Dosage: 1 D.F:400MG/BODY
     Route: 041
  2. VEPESID [Suspect]
     Indication: SARCOMA
     Dosage: 1 D.F:100MG/BODY
  3. DOXORUBICIN HCL [Suspect]
     Indication: SARCOMA
     Dosage: 1 D.F:80MG/BODY INJ
  4. PIRARUBICIN [Suspect]
     Indication: SARCOMA
     Dosage: 1 D.F:50MG/BODY INJ

REACTIONS (2)
  - HISTIOCYTOSIS HAEMATOPHAGIC [None]
  - LEUKAEMIA [None]
